FAERS Safety Report 5823980-6 (Version None)
Quarter: 2008Q3

REPORT INFORMATION
  Report Type: 
  Country: None (occurrence: None)
  Receive Date: 20080728
  Receipt Date: 20080716
  Transmission Date: 20090109
  Serious: Yes (Death)
  Sender: FDA-Public Use
  Company Number: US-ELI_LILLY_AND_COMPANY-US200801004444

PATIENT
  Sex: Female
  Weight: 136.5 kg

DRUGS (2)
  1. ZYPREXA [Suspect]
     Dosage: 10 MG, UNK
     Dates: start: 20001208, end: 20040324
  2. ZYPREXA [Suspect]
     Dosage: 20 MG, UNK

REACTIONS (2)
  - DEATH [None]
  - DIABETES MELLITUS [None]
